FAERS Safety Report 5165046-7 (Version None)
Quarter: 2006Q4

REPORT INFORMATION
  Report Type: 
  Country: None (occurrence: None)
  Receive Date: 20061124
  Receipt Date: 20061114
  Transmission Date: 20070319
  Serious: Yes (Hospitalization, Other)
  Sender: FDA-Public Use
  Company Number: 2006125029

PATIENT
  Age: 19 Year
  Sex: Male
  Weight: 53 kg

DRUGS (2)
  1. GENOTROPIN [Suspect]
     Indication: BODY HEIGHT BELOW NORMAL
     Dosage: 2.4 MG (DAILY), SUBCUTANEOUS
     Route: 058
     Dates: start: 20010101, end: 20060101
  2. PREDNISONE [Concomitant]

REACTIONS (2)
  - COLON CANCER [None]
  - METASTASES TO LYMPH NODES [None]
